FAERS Safety Report 22809026 (Version 2)
Quarter: 2023Q4

REPORT INFORMATION
  Report Type: Spontaneous
  Country: US (occurrence: US)
  Receive Date: 20230810
  Receipt Date: 20231017
  Transmission Date: 20240110
  Serious: No
  Sender: FDA-Public Use
  Company Number: US-ABBVIE-2219955US

PATIENT
  Sex: Male

DRUGS (3)
  1. ARMOUR THYROID [Suspect]
     Active Substance: THYROID, PORCINE
     Indication: Hypothyroidism
     Dosage: FORM STRENGTH:15 MG
     Route: 048
     Dates: start: 2000, end: 20220609
  2. ARMOUR THYROID [Suspect]
     Active Substance: THYROID, PORCINE
     Indication: Hypothyroidism
     Dosage: FORM STRENGTH: 90 MG
     Route: 048
  3. ARMOUR THYROID [Suspect]
     Active Substance: THYROID, PORCINE
     Indication: Hypothyroidism
     Dosage: FORM STRENGTH 120 MG
     Route: 048

REACTIONS (21)
  - Inappropriate schedule of product administration [Unknown]
  - Arthralgia [Unknown]
  - Weight increased [Unknown]
  - Pain [Recovered/Resolved]
  - Heart rate irregular [Recovered/Resolved]
  - Alopecia [Recovered/Resolved]
  - Nightmare [Recovered/Resolved]
  - Dry skin [Recovered/Resolved]
  - Asthenia [Recovered/Resolved]
  - Condition aggravated [Recovered/Resolved]
  - Cardiac disorder [Unknown]
  - Unevaluable event [Unknown]
  - Malaise [Unknown]
  - Skin disorder [Unknown]
  - General physical health deterioration [Unknown]
  - Chest pain [Recovered/Resolved]
  - Feeling abnormal [Unknown]
  - Temperature intolerance [Recovered/Resolved]
  - Drug ineffective [Unknown]
  - Panic attack [Unknown]
  - Fatigue [Unknown]
